FAERS Safety Report 10610721 (Version 3)
Quarter: 2014Q4

REPORT INFORMATION
  Report Type: Spontaneous
  Country: US (occurrence: US)
  Receive Date: 20141126
  Receipt Date: 20141222
  Transmission Date: 20150529
  Serious: Yes (Death)
  Sender: FDA-Public Use
  Company Number: US-009507513-1411USA010739

PATIENT
  Age: 75 Year
  Sex: Male

DRUGS (2)
  1. NOXAFIL [Suspect]
     Active Substance: POSACONAZOLE
     Indication: ANTIFUNGAL TREATMENT
     Dosage: 100 MG, TWICE DAILY FOR ONE DAY
     Route: 048
     Dates: start: 20140812, end: 20140812
  2. NOXAFIL [Suspect]
     Active Substance: POSACONAZOLE
     Dosage: 3 (100MG) TABLETS DAILY
     Route: 048
     Dates: start: 20140813

REACTIONS (1)
  - Death [Fatal]

NARRATIVE: CASE EVENT DATE: 20140916
